FAERS Safety Report 15382975 (Version 1)
Quarter: 2018Q3

REPORT INFORMATION
  Report Type: Spontaneous
  Country: US (occurrence: US)
  Receive Date: 20180913
  Receipt Date: 20180913
  Transmission Date: 20181010
  Serious: Yes (Other)
  Sender: FDA-Public Use
  Company Number: US-ASTELLAS-2017US038965

PATIENT
  Sex: Male

DRUGS (4)
  1. XTANDI [Suspect]
     Active Substance: ENZALUTAMIDE
     Dosage: 160 MG, UNKNOWN FREQUENCY, (DID NOT TOOK HIS ENZALUTAMIDE MEDICATION EVERY DAY)
     Route: 048
  2. XTANDI [Suspect]
     Active Substance: ENZALUTAMIDE
     Route: 048
  3. XTANDI [Suspect]
     Active Substance: ENZALUTAMIDE
     Indication: PROSTATE CANCER
     Dosage: 160 MG ( 4 X 40MG), ONCE DAILY
     Route: 048
     Dates: start: 201609
  4. XTANDI [Suspect]
     Active Substance: ENZALUTAMIDE
     Dosage: 160 MG ( 4 X 40MG), ONCE DAILY
     Route: 048

REACTIONS (7)
  - Eating disorder [Unknown]
  - Nausea [Unknown]
  - Fatigue [Unknown]
  - Treatment noncompliance [Unknown]
  - Weight decreased [Unknown]
  - Malignant neoplasm progression [Unknown]
  - Decreased appetite [Unknown]
